FAERS Safety Report 4831583-5 (Version None)
Quarter: 2005Q4

REPORT INFORMATION
  Report Type: 
  Country: None (occurrence: None)
  Receive Date: 20051118
  Receipt Date: 20050912
  Transmission Date: 20060501
  Serious: Yes (Hospitalization)
  Sender: FDA-Public Use
  Company Number: US-MERCK-0509USA01692

PATIENT
  Age: 67 Year
  Sex: Female

DRUGS (3)
  1. VIOXX [Suspect]
     Indication: OSTEOARTHRITIS
     Route: 048
     Dates: start: 20000101, end: 20040329
  2. SYNTHROID [Concomitant]
     Route: 065
  3. CALCIUM (UNSPECIFIED) AND VITAMIN D (UNSPECIFIED) [Concomitant]
     Route: 065

REACTIONS (12)
  - ATRIOVENTRICULAR BLOCK COMPLETE [None]
  - ATRIOVENTRICULAR BLOCK SECOND DEGREE [None]
  - BLOOD PRESSURE INCREASED [None]
  - DIARRHOEA [None]
  - HYPERTENSION [None]
  - OSTEOPENIA [None]
  - OSTEOPOROSIS [None]
  - POLYP COLORECTAL [None]
  - SINUS BRADYCARDIA [None]
  - TACHYCARDIA [None]
  - TENDONITIS [None]
  - VENTRICULAR HYPERTROPHY [None]
